FAERS Safety Report 23243323 (Version 1)
Quarter: 2023Q4

REPORT INFORMATION
  Report Type: Spontaneous
  Country: US (occurrence: US)
  Receive Date: 20231130
  Receipt Date: 20231130
  Transmission Date: 20240110
  Serious: Yes (Other)
  Sender: FDA-Public Use
  Company Number: US-STRIDES ARCOLAB LIMITED-2023SP014579

PATIENT
  Age: 46 Year
  Sex: Female

DRUGS (3)
  1. PREDNISOLONE [Suspect]
     Active Substance: PREDNISOLONE
     Indication: Dermatitis
     Dosage: 1 MILLIGRAM/KILOGRAM
     Route: 065
  2. CAMIDANLUMAB TESIRINE [Concomitant]
     Active Substance: CAMIDANLUMAB TESIRINE
     Indication: Hodgkin^s disease refractory
     Dosage: UNK, CYCLICAL, 4 CYCLES
     Route: 065
  3. NIVOLUMAB [Concomitant]
     Active Substance: NIVOLUMAB
     Indication: Hodgkin^s disease refractory
     Dosage: UNK
     Route: 065

REACTIONS (1)
  - Treatment failure [Unknown]
